FAERS Safety Report 5713085-7 (Version None)
Quarter: 2008Q2

REPORT INFORMATION
  Report Type: 
  Country: None (occurrence: None)
  Receive Date: 20080422
  Receipt Date: 20080410
  Transmission Date: 20081010
  Serious: Yes (Other)
  Sender: FDA-Public Use
  Company Number: PHHY2008CA04091

PATIENT

DRUGS (1)
  1. DIOVAN HCT [Suspect]

REACTIONS (3)
  - HYPERTENSION [None]
  - MICROALBUMINURIA [None]
  - PROTEINURIA [None]
